FAERS Safety Report 24572244 (Version 2)
Quarter: 2024Q4

REPORT INFORMATION
  Report Type: Spontaneous
  Country: US (occurrence: US)
  Receive Date: 20241101
  Receipt Date: 20241125
  Transmission Date: 20250115
  Serious: No
  Sender: BRISTOL-MYERS SQUIBB COMPANY
  Company Number: US-BRISTOL-MYERS SQUIBB COMPANY-2024-171307

PATIENT
  Age: 73 Year
  Sex: Female
  Weight: 111.13 kg

DRUGS (1)
  1. REVLIMID [Suspect]
     Active Substance: LENALIDOMIDE
     Indication: Malignant melanoma
     Dosage: 2WKSON/1WKOFF
     Route: 048
     Dates: start: 20240701

REACTIONS (6)
  - Dizziness [Recovering/Resolving]
  - Fatigue [Recovering/Resolving]
  - Off label use [Unknown]
  - Somnolence [Recovering/Resolving]
  - Asthenia [Recovering/Resolving]
  - Eyelid infection [Recovering/Resolving]
